FAERS Safety Report 16728458 (Version 1)
Quarter: 2019Q3

REPORT INFORMATION
  Report Type: Spontaneous
  Country: CN (occurrence: CN)
  Receive Date: 20190822
  Receipt Date: 20190822
  Transmission Date: 20191005
  Serious: Yes (Other)
  Sender: FDA-Public Use
  Company Number: CN-GILEAD-2019-0424473

PATIENT
  Age: 65 Year
  Sex: Female

DRUGS (4)
  1. VIREAD [Suspect]
     Active Substance: TENOFOVIR DISOPROXIL FUMARATE
     Indication: HEPATITIS B
     Dosage: 1 DOSAGE FORM, QD
     Route: 048
     Dates: start: 20180805
  2. CALCITRIOL. [Concomitant]
     Active Substance: CALCITRIOL
  3. VD [Concomitant]
  4. CALCIUM [Concomitant]
     Active Substance: CALCIUM

REACTIONS (4)
  - Beta 2 microglobulin urine increased [Not Recovered/Not Resolved]
  - Beta 2 microglobulin increased [Not Recovered/Not Resolved]
  - Weight decreased [Not Recovered/Not Resolved]
  - Osteoporosis [Not Recovered/Not Resolved]

NARRATIVE: CASE EVENT DATE: 2019
